FAERS Safety Report 24881809 (Version 1)
Quarter: 2025Q1

REPORT INFORMATION
  Report Type: Spontaneous
  Country: NL (occurrence: NL)
  Receive Date: 20250124
  Receipt Date: 20250124
  Transmission Date: 20250408
  Serious: Yes (Life-Threatening, Other)
  Sender: GLAXOSMITHKLINE
  Company Number: None

PATIENT

DRUGS (4)
  1. BUPROPION [Suspect]
     Active Substance: BUPROPION
     Indication: Attention deficit hyperactivity disorder
     Dosage: 150 MG, QD (1 TIME DAILY)
     Route: 048
     Dates: start: 20241212
  2. BUPROPION [Suspect]
     Active Substance: BUPROPION
     Indication: Anxiety disorder
  3. LISINOPRIL [Concomitant]
     Active Substance: LISINOPRIL
     Indication: Product used for unknown indication
     Route: 048
  4. PROMETHAZINE [Concomitant]
     Active Substance: PROMETHAZINE HYDROCHLORIDE
     Indication: Product used for unknown indication
     Route: 048

REACTIONS (2)
  - Suicidal ideation [Recovering/Resolving]
  - Depressed mood [Recovering/Resolving]

NARRATIVE: CASE EVENT DATE: 20241215
